FAERS Safety Report 25505808 (Version 1)
Quarter: 2025Q3

REPORT INFORMATION
  Report Type: Spontaneous
  Country: CN (occurrence: CN)
  Receive Date: 20250702
  Receipt Date: 20250702
  Transmission Date: 20251021
  Serious: Yes (Hospitalization)
  Sender: PFIZER
  Company Number: CN-PFIZER INC-PV202500077613

PATIENT
  Age: 48 Year
  Sex: Female

DRUGS (1)
  1. PACLITAXEL [Suspect]
     Active Substance: PACLITAXEL
     Indication: Ovarian cancer
     Dosage: 30 MG, 1X/DAY
     Route: 041
     Dates: start: 20250619, end: 20250619

REACTIONS (4)
  - Tachypnoea [Recovering/Resolving]
  - Cyanosis [Recovering/Resolving]
  - Chest discomfort [Recovering/Resolving]
  - Hypersensitivity [Recovering/Resolving]

NARRATIVE: CASE EVENT DATE: 20250619
